FAERS Safety Report 6501327-X (Version None)
Quarter: 2009Q4

REPORT INFORMATION
  Report Type: 
  Country: None (occurrence: None)
  Receive Date: 20091216
  Receipt Date: 20091210
  Transmission Date: 20100525
  Serious: Yes (Other)
  Sender: FDA-Public Use
  Company Number: US-JNJCH-2009030177

PATIENT
  Age: 55 Year
  Sex: Male
  Weight: 104.3 kg

DRUGS (2)
  1. TUCKS HEMORRHOIDAL OINTMENT [Suspect]
     Indication: HAEMORRHOIDS
     Dosage: TEXT:UNSPECIFIED
     Route: 061
  2. ANTIHAEMORRHOIDALS FOR TOPICAL USE [Suspect]
     Indication: DRUG USE FOR UNKNOWN INDICATION
     Dosage: TEXT:UNSPECIFIED
     Route: 065

REACTIONS (2)
  - APPLICATION SITE BURN [None]
  - APPLICATION SITE EXFOLIATION [None]
